FAERS Safety Report 6179701-3 (Version None)
Quarter: 2009Q2

REPORT INFORMATION
  Report Type: 
  Country: None (occurrence: None)
  Receive Date: 20090505
  Receipt Date: 20090423
  Transmission Date: 20091009
  Serious: Yes (Death, Hospitalization, Other)
  Sender: FDA-Public Use
  Company Number: US-WYE-H07399008

PATIENT
  Sex: Male
  Weight: 88.53 kg

DRUGS (1)
  1. PROTONIX [Suspect]
     Indication: GASTROOESOPHAGEAL REFLUX DISEASE
     Dosage: UNKNOWN
     Dates: end: 20070401

REACTIONS (2)
  - PANCREATIC CARCINOMA METASTATIC [None]
  - PANCREATITIS ACUTE [None]
